FAERS Safety Report 7995459-7 (Version None)
Quarter: 2011Q4

REPORT INFORMATION
  Report Type: 
  Country: None (occurrence: None)
  Receive Date: 20111220
  Receipt Date: 20111208
  Transmission Date: 20120403
  Serious: Yes (Hospitalization, Other)
  Sender: FDA-Public Use
  Company Number: KR-PFIZER INC-2011288949

PATIENT
  Age: 58 Year
  Sex: Male
  Weight: 55.6 kg

DRUGS (2)
  1. CODEINE [Concomitant]
     Indication: COUGH
     Dosage: 20 MG, AS NEEDED
     Route: 048
     Dates: start: 20111019
  2. CRIZOTINIB [Suspect]
     Indication: NON-SMALL CELL LUNG CANCER
     Dosage: 250 MG, 2X/DAY
     Route: 048
     Dates: start: 20111028, end: 20111128

REACTIONS (1)
  - HY'S LAW CASE [None]
